FAERS Safety Report 9522904 (Version 10)
Quarter: 2014Q2

REPORT INFORMATION
  Report Type: Report from Study
  Country: CH (occurrence: CH)
  Receive Date: 20130913
  Receipt Date: 20140418
  Transmission Date: 20141212
  Serious: Yes (Death, Life-Threatening, Hospitalization)
  Sender: FDA-Public Use
  Company Number: CH-B.I. PHARMACEUTICALS,INC./RIDGEFIELD-2013-BI-25815BI

PATIENT
  Age: 59 Year
  Sex: Male
  Weight: 64 kg

DRUGS (1)
  1. BIBW 2992 [Suspect]
     Indication: SQUAMOUS CELL CARCINOMA OF HEAD AND NECK
     Route: 048
     Dates: start: 20130719, end: 20130820

REACTIONS (5)
  - General physical health deterioration [Fatal]
  - Hyponatraemia [Recovered/Resolved]
  - General physical health deterioration [Not Recovered/Not Resolved]
  - Pleural effusion [Unknown]
  - Staphylococcal sepsis [Unknown]
